FAERS Safety Report 23549639 (Version 1)
Quarter: 2024Q1

REPORT INFORMATION
  Report Type: Spontaneous
  Country: US (occurrence: None)
  Receive Date: 20240220
  Receipt Date: 20240220
  Transmission Date: 20240410
  Serious: Yes (Hospitalization, Disabling)
  Sender: FDA-Public Use
  Company Number: None

PATIENT
  Age: 73 Year
  Sex: Male
  Weight: 69.75 kg

DRUGS (20)
  1. LEVOFLOXACIN [Suspect]
     Active Substance: LEVOFLOXACIN
     Indication: Antibiotic prophylaxis
     Dates: start: 20231218, end: 20231227
  2. DEVICE [Concomitant]
     Active Substance: DEVICE
  3. OMEPRAZOLE [Concomitant]
     Active Substance: OMEPRAZOLE
  4. PREDNISONE [Concomitant]
     Active Substance: PREDNISONE
  5. WELLBUTRIN [Concomitant]
     Active Substance: BUPROPION HYDROCHLORIDE
  6. MIRTAZAPINE [Concomitant]
  7. DULOXETINE [Concomitant]
     Active Substance: DULOXETINE
  8. ELIQUIS [Concomitant]
     Active Substance: APIXABAN
  9. PRAZOSIN [Concomitant]
     Active Substance: PRAZOSIN
  10. NALTREXONE [Concomitant]
     Active Substance: NALTREXONE
  11. DICLOFENAC [Concomitant]
     Active Substance: DICLOFENAC
  12. LIDOCAINE [Concomitant]
     Active Substance: LIDOCAINE
  13. VITAMINS [Concomitant]
     Active Substance: VITAMINS
  14. Vitamins B complex [Concomitant]
  15. Vitamins C complex [Concomitant]
  16. Vitamins D complex [Concomitant]
  17. ASPIRIN [Concomitant]
     Active Substance: ASPIRIN
  18. CLARITIN [Concomitant]
     Active Substance: LORATADINE
  19. CALCIUM [Concomitant]
     Active Substance: CALCIUM
  20. CLONAZEPAM [Concomitant]
     Active Substance: CLONAZEPAM

REACTIONS (2)
  - Arthralgia [None]
  - Tendon rupture [None]

NARRATIVE: CASE EVENT DATE: 20231227
